FAERS Safety Report 8230168-0 (Version None)
Quarter: 2012Q1

REPORT INFORMATION
  Report Type: 
  Country: None (occurrence: None)
  Receive Date: 20120323
  Receipt Date: 20120316
  Transmission Date: 20120608
  Serious: No
  Sender: FDA-Public Use
  Company Number: US-PFIZER INC-2012071105

PATIENT
  Age: 42 Year
  Sex: Female

DRUGS (1)
  1. NORGESTREL AND ETHINYL ESTRADIOL [Suspect]
     Indication: CONTRACEPTION
     Dosage: UNK
     Route: 048
     Dates: start: 20100101

REACTIONS (4)
  - BACK PAIN [None]
  - AMENORRHOEA [None]
  - PRODUCT QUALITY ISSUE [None]
  - HEADACHE [None]
